FAERS Safety Report 8296504-4 (Version None)
Quarter: 2012Q2

REPORT INFORMATION
  Report Type: 
  Country: None (occurrence: None)
  Receive Date: 20120418
  Receipt Date: 20120417
  Transmission Date: 20120825
  Serious: No
  Sender: FDA-Public Use
  Company Number: US-PFIZER INC-2012095465

PATIENT
  Sex: Male

DRUGS (2)
  1. ADVIL LIQUI-GELS [Suspect]
     Indication: MIGRAINE
     Dosage: UNK
     Dates: end: 20120401
  2. ADVIL MIGRAINE LIQUI-GELS [Suspect]
     Indication: MIGRAINE
     Dosage: 400 MG, 1X/DAY
     Route: 048
     Dates: start: 20120411, end: 20120415

REACTIONS (1)
  - DRUG INEFFECTIVE [None]
